FAERS Safety Report 4965041-4 (Version None)
Quarter: 2006Q2

REPORT INFORMATION
  Report Type: 
  Country: None (occurrence: None)
  Receive Date: 20060403
  Receipt Date: 20060322
  Transmission Date: 20061013
  Serious: Yes (Other)
  Sender: FDA-Public Use
  Company Number: 2006040741

PATIENT
  Sex: Male

DRUGS (1)
  1. CARDURA XL [Suspect]
     Indication: BENIGN PROSTATIC HYPERPLASIA
     Dosage: 4 MG (4 MG, 1X/DAY INTERVAL: EVERYDAY); ORAL
     Route: 048
     Dates: start: 20020701

REACTIONS (3)
  - GASTRIC CANCER [None]
  - GASTROINTESTINAL CARCINOMA [None]
  - NAUSEA [None]
